FAERS Safety Report 8975700 (Version 3)
Quarter: 2013Q1

REPORT INFORMATION
  Report Type: Report from Study
  Country: DE (occurrence: DE)
  Receive Date: 20121219
  Receipt Date: 20130131
  Transmission Date: 20140127
  Serious: Yes (Death)
  Sender: FDA-Public Use
  Company Number: DE-ROCHE-1168172

PATIENT
  Sex: Female

DRUGS (11)
  1. RITUXIMAB [Suspect]
     Indication: B-CELL LYMPHOMA
     Route: 042
     Dates: start: 20121129, end: 20121129
  2. CYCLOPHOSPHAMIDE [Suspect]
     Indication: B-CELL LYMPHOMA
     Route: 042
     Dates: start: 20121130, end: 20121130
  3. DOXORUBICINE [Suspect]
     Indication: B-CELL LYMPHOMA
     Route: 042
     Dates: start: 20121130, end: 20121130
  4. VINCRISTINE [Suspect]
     Indication: B-CELL LYMPHOMA
     Route: 042
     Dates: start: 20121130, end: 20121130
  5. PREDNISOLONE [Suspect]
     Indication: B-CELL LYMPHOMA
     Route: 048
     Dates: start: 20121201, end: 20121204
  6. PEGFILGRASTIM [Suspect]
     Indication: B-CELL LYMPHOMA
     Route: 058
     Dates: start: 20121203, end: 20121203
  7. ACETYLSALICYLIC ACID [Concomitant]
     Indication: ANGINA PECTORIS
  8. TRAMADOL [Concomitant]
     Indication: PAIN
  9. VILDAGLIPTIN [Concomitant]
  10. METFORMIN [Concomitant]
     Indication: DIABETES MELLITUS
  11. GABAPENTIN [Concomitant]
     Indication: EPILEPSY

REACTIONS (3)
  - Arrhythmia [Fatal]
  - Resuscitation [Fatal]
  - Brain injury [Fatal]
